FAERS Safety Report 6260956-1 (Version None)
Quarter: 2009Q3

REPORT INFORMATION
  Report Type: 
  Country: None (occurrence: None)
  Receive Date: 20090709
  Receipt Date: 20090707
  Transmission Date: 20100115
  Serious: Yes (Hospitalization)
  Sender: FDA-Public Use
  Company Number: TW-BRISTOL-MYERS SQUIBB COMPANY-14688279

PATIENT
  Age: 54 Year
  Sex: Male
  Weight: 56 kg

DRUGS (5)
  1. CETUXIMAB [Suspect]
     Indication: OESOPHAGEAL SQUAMOUS CELL CARCINOMA
     Dosage: 03JUN2009:400MG/M2,MOST RECENT INFUSION ON 22-JUN -2009.
     Route: 042
     Dates: start: 20090610
  2. PACLITAXEL [Suspect]
     Indication: OESOPHAGEAL SQUAMOUS CELL CARCINOMA
     Route: 042
     Dates: start: 20090608
  3. CISPLATIN [Suspect]
     Indication: OESOPHAGEAL SQUAMOUS CELL CARCINOMA
     Route: 042
     Dates: start: 20090609
  4. RADIOTHERAPY [Suspect]
     Indication: OESOPHAGEAL SQUAMOUS CELL CARCINOMA
  5. SUCRALFATE [Concomitant]
     Indication: ABDOMINAL PAIN UPPER
     Route: 048
     Dates: start: 20090618

REACTIONS (3)
  - LEUKOPENIA [None]
  - NEUTROPENIA [None]
  - OESOPHAGITIS [None]
